FAERS Safety Report 6579467-9 (Version None)
Quarter: 2010Q1

REPORT INFORMATION
  Report Type: 
  Country: None (occurrence: None)
  Receive Date: 20100212
  Receipt Date: 20100201
  Transmission Date: 20100710
  Serious: Yes (Other)
  Sender: FDA-Public Use
  Company Number: US-BRISTOL-MYERS SQUIBB COMPANY-14972848

PATIENT
  Age: 48 Year
  Sex: Male

DRUGS (15)
  1. ATAZANAVIR [Suspect]
  2. PRAVASTATIN SODIUM [Suspect]
  3. FENOFIBRATE [Suspect]
  4. EFAVIRENZ [Suspect]
  5. EZETIMIBE [Suspect]
     Dosage: 1DF: EZETIMIBE TAB
  6. MYCOPHENOLATE MOFETIL [Suspect]
  7. CYCLOSPORINE [Suspect]
  8. SIROLIMUS [Suspect]
  9. LOPINAVIR [Suspect]
  10. FLUVASTATIN SODIUM [Suspect]
  11. COLESEVELAM [Suspect]
  12. LAMIVUDINE [Suspect]
  13. ABACAVIR SULFATE [Suspect]
  14. PREDNISONE [Suspect]
  15. RITONAVIR [Suspect]

REACTIONS (3)
  - CHRONIC ALLOGRAFT NEPHROPATHY [None]
  - LIPIDS ABNORMAL [None]
  - NEPHROPATHY TOXIC [None]
